FAERS Safety Report 18355072 (Version 11)
Quarter: 2025Q1

REPORT INFORMATION
  Report Type: Spontaneous
  Country: US (occurrence: US)
  Receive Date: 20201007
  Receipt Date: 20250221
  Transmission Date: 20250408
  Serious: No
  Sender: PFIZER
  Company Number: US-PFIZER INC-2020383353

PATIENT
  Age: 64 Year
  Sex: Female
  Weight: 92.971 kg

DRUGS (19)
  1. IBRANCE [Suspect]
     Active Substance: PALBOCICLIB
     Indication: Breast cancer female
     Route: 048
     Dates: start: 202003
  2. IBRANCE [Suspect]
     Active Substance: PALBOCICLIB
     Indication: Bone cancer metastatic
     Route: 048
  3. IBRANCE [Suspect]
     Active Substance: PALBOCICLIB
     Route: 048
     Dates: start: 20200313
  4. IBRANCE [Suspect]
     Active Substance: PALBOCICLIB
     Route: 048
     Dates: start: 20200731
  5. IBRANCE [Suspect]
     Active Substance: PALBOCICLIB
     Route: 048
     Dates: start: 20221221, end: 20241205
  6. IBRANCE [Suspect]
     Active Substance: PALBOCICLIB
     Route: 048
  7. IBRANCE [Suspect]
     Active Substance: PALBOCICLIB
     Route: 048
  8. XGEVA [Concomitant]
     Active Substance: DENOSUMAB
  9. CALCIUM\CHOLECALCIFEROL [Concomitant]
     Active Substance: CALCIUM\CHOLECALCIFEROL
  10. IBUPROFEN [Concomitant]
     Active Substance: IBUPROFEN
  11. ONDANSETRON HYDROCHLORIDE [Concomitant]
     Active Substance: ONDANSETRON HYDROCHLORIDE
  12. MILK OF MAGNESIA [Concomitant]
     Active Substance: MAGNESIUM HYDROXIDE
  13. MORPHINE SULFATE [Concomitant]
     Active Substance: MORPHINE SULFATE
  14. ANASPAZ [Concomitant]
     Active Substance: HYOSCYAMINE SULFATE
  15. FULVESTRANT [Concomitant]
     Active Substance: FULVESTRANT
  16. XANAX [Concomitant]
     Active Substance: ALPRAZOLAM
     Dosage: 0.5 MG, 2X/DAY, FOR 30 DAYS
     Route: 048
     Dates: start: 20200415, end: 20200515
  17. ASPIRIN [Concomitant]
     Active Substance: ASPIRIN
     Dosage: 1 DF, 1X/DAY
  18. CALTRATE [Concomitant]
     Active Substance: CALCIUM CARBONATE
     Dosage: UNK, 1X/DAY (CALTRATE SOFT CHEWS)
  19. MORPHINE [Concomitant]
     Active Substance: MORPHINE
     Dosage: UNK, 2X/DAY

REACTIONS (4)
  - Abdominal discomfort [Unknown]
  - Malaise [Unknown]
  - White blood cell count decreased [Unknown]
  - Off label use [Unknown]

NARRATIVE: CASE EVENT DATE: 20200101
